FAERS Safety Report 5068830-3 (Version None)
Quarter: 2006Q3

REPORT INFORMATION
  Report Type: 
  Country: None (occurrence: None)
  Receive Date: 20060802
  Receipt Date: 20060425
  Transmission Date: 20061208
  Serious: No
  Sender: FDA-Public Use
  Company Number: US-BRISTOL-MYERS SQUIBB COMPANY-13356506

PATIENT
  Age: 77 Year
  Sex: Female
  Weight: 85 kg

DRUGS (1)
  1. COUMADIN [Suspect]
     Indication: COAGULATION FACTOR V LEVEL ABNORMAL
     Dates: start: 19980101

REACTIONS (3)
  - HAIR COLOUR CHANGES [None]
  - SKIN WRINKLING [None]
  - WEIGHT DECREASED [None]
